FAERS Safety Report 5953762-6 (Version None)
Quarter: 2008Q4

REPORT INFORMATION
  Report Type: 
  Country: None (occurrence: None)
  Receive Date: 20081114
  Receipt Date: 20081031
  Transmission Date: 20090506
  Serious: Yes (Other)
  Sender: FDA-Public Use
  Company Number: RU-ROCHE-595559

PATIENT
  Age: 49 Year
  Sex: Female

DRUGS (1)
  1. BONIVA [Suspect]
     Indication: OSTEOPOROSIS POSTMENOPAUSAL
     Route: 048
     Dates: start: 20081028

REACTIONS (11)
  - ASTHENIA [None]
  - BONE PAIN [None]
  - DYSPNOEA [None]
  - HEPATITIS [None]
  - HYPERTENSION [None]
  - MYALGIA [None]
  - OEDEMA [None]
  - OLIGURIA [None]
  - PLEURAL EFFUSION [None]
  - PYREXIA [None]
  - SKIN OEDEMA [None]
